FAERS Safety Report 15456606 (Version 1)
Quarter: 2018Q4

REPORT INFORMATION
  Report Type: Report from Study
  Country: US (occurrence: US)
  Receive Date: 20181002
  Receipt Date: 20181002
  Transmission Date: 20190204
  Serious: Yes (Other)
  Sender: FDA-Public Use
  Company Number: US-ARIAD PHARMACEUTICALS, INC-2017US008697

PATIENT
  Age: 18 Year
  Sex: Male
  Weight: 150 kg

DRUGS (3)
  1. PONATINIB [Suspect]
     Active Substance: PONATINIB
     Dosage: 15 MG, UNK
     Route: 048
  2. IMBRUVICA [Suspect]
     Active Substance: IBRUTINIB
     Indication: PRODUCT USED FOR UNKNOWN INDICATION
     Dosage: UNK
     Route: 065
     Dates: end: 20180920
  3. PONATINIB [Suspect]
     Active Substance: PONATINIB
     Indication: CHRONIC MYELOID LEUKAEMIA
     Dosage: 45 MG, QD
     Route: 048
     Dates: start: 20161117

REACTIONS (4)
  - Bone marrow transplant [Unknown]
  - Off label use [Unknown]
  - Skin ulcer [Unknown]
  - Oedema peripheral [Unknown]

NARRATIVE: CASE EVENT DATE: 20170621
